FAERS Safety Report 6974463-1 (Version None)
Quarter: 2010Q3

REPORT INFORMATION
  Report Type: 
  Country: None (occurrence: None)
  Receive Date: 20100909
  Receipt Date: 20081219
  Transmission Date: 20110219
  Serious: Yes (Hospitalization, Other)
  Sender: FDA-Public Use
  Company Number: US-WYE-H05630908

PATIENT
  Sex: Female
  Weight: 83.08 kg

DRUGS (7)
  1. PRISTIQ [Suspect]
     Indication: DEPRESSION
     Route: 048
     Dates: start: 20080630, end: 20080722
  2. ZOCOR [Concomitant]
     Indication: HYPERLIPIDAEMIA
     Route: 048
     Dates: start: 20080212, end: 20080812
  3. PRANDIN [Concomitant]
     Indication: DIABETES MELLITUS
     Route: 048
     Dates: start: 20080220
  4. NEURONTIN [Concomitant]
     Indication: NEUROPATHY PERIPHERAL
     Route: 048
     Dates: start: 20080221, end: 20080812
  5. THYROID TAB [Concomitant]
     Indication: HYPOTHYROIDISM
     Route: 048
     Dates: start: 20080530, end: 20080620
  6. THYROID TAB [Concomitant]
     Route: 048
     Dates: start: 20080621, end: 20081130
  7. INDOCIN [Concomitant]
     Indication: OSTEOARTHRITIS
     Route: 048
     Dates: start: 20080321

REACTIONS (1)
  - CONVULSION [None]
